FAERS Safety Report 13519429 (Version 5)
Quarter: 2018Q2

REPORT INFORMATION
  Report Type: Report from Study
  Country: US (occurrence: US)
  Receive Date: 20170505
  Receipt Date: 20180426
  Transmission Date: 20180711
  Serious: Yes (Disabling, Other)
  Sender: FDA-Public Use
  Company Number: US-ACTELION-A-US2017-153375

PATIENT
  Age: 83 Year
  Sex: Female

DRUGS (2)
  1. OPSUMIT [Suspect]
     Active Substance: MACITENTAN
     Indication: PULMONARY ARTERIAL HYPERTENSION
     Dosage: 10 MG, QD
     Route: 048
     Dates: start: 20161122
  2. POTASSIUM [Concomitant]
     Active Substance: POTASSIUM

REACTIONS (21)
  - Blindness [Unknown]
  - Walking disability [Unknown]
  - Loss of personal independence in daily activities [Not Recovered/Not Resolved]
  - Bowel movement irregularity [Not Recovered/Not Resolved]
  - Therapeutic product ineffective [Unknown]
  - Fluid retention [Not Recovered/Not Resolved]
  - Dyspnoea [Unknown]
  - Mastication disorder [Unknown]
  - Dysphagia [Unknown]
  - Peripheral swelling [Unknown]
  - Therapy non-responder [Not Recovered/Not Resolved]
  - Poor quality sleep [Unknown]
  - Nasal congestion [Unknown]
  - Swelling [Unknown]
  - Condition aggravated [Unknown]
  - Deafness [Unknown]
  - Malaise [Unknown]
  - Feeling abnormal [Unknown]
  - Oedema [Unknown]
  - Superficial vein prominence [Unknown]
  - Depression [Unknown]

NARRATIVE: CASE EVENT DATE: 20171031
